FAERS Safety Report 8169844-7 (Version None)
Quarter: 2012Q1

REPORT INFORMATION
  Report Type: 
  Country: None (occurrence: None)
  Receive Date: 20120228
  Receipt Date: 20120221
  Transmission Date: 20120608
  Serious: Yes (Death)
  Sender: FDA-Public Use
  Company Number: RU-UCBSA-051932

PATIENT
  Age: 16 Year
  Sex: Female

DRUGS (2)
  1. NO CONCOMITANT MEDICATION [Concomitant]
  2. KEPPRA [Suspect]
     Indication: GRAND MAL CONVULSION
     Route: 048

REACTIONS (1)
  - DEATH [None]
